FAERS Safety Report 25282157 (Version 1)
Quarter: 2025Q2

REPORT INFORMATION
  Report Type: Other
  Country: US (occurrence: US)
  Receive Date: 20250508
  Receipt Date: 20250508
  Transmission Date: 20250717
  Serious: Yes (Hospitalization)
  Sender: WES PHARMA INC
  Company Number: US-WES Pharma Inc-2176323

PATIENT
  Age: 16 Year
  Sex: Female

DRUGS (5)
  1. METHYLPHENIDATE HYDROCHLORIDE [Suspect]
     Active Substance: METHYLPHENIDATE HYDROCHLORIDE
     Indication: Product used for unknown indication
  2. BUPROPION [Suspect]
     Active Substance: BUPROPION
  3. AMPHETAMINE\DEXTROAMPHETAMINE [Concomitant]
     Active Substance: AMPHETAMINE\DEXTROAMPHETAMINE
  4. KETAMINE HYDROCHLORIDE [Concomitant]
     Active Substance: KETAMINE HYDROCHLORIDE
  5. QUETIAPINE [Suspect]
     Active Substance: QUETIAPINE

REACTIONS (8)
  - Blood sodium increased [Unknown]
  - Intentional overdose [Unknown]
  - Intentional product misuse [Unknown]
  - Tachycardia [Unknown]
  - Protein urine present [Unknown]
  - High density lipoprotein [Unknown]
  - Blood magnesium increased [Unknown]
  - Protein total increased [Unknown]
